FAERS Safety Report 8299275-0 (Version None)
Quarter: 2012Q2

REPORT INFORMATION
  Report Type: 
  Country: None (occurrence: None)
  Receive Date: 20120419
  Receipt Date: 20120407
  Transmission Date: 20120825
  Serious: Yes (Other)
  Sender: FDA-Public Use
  Company Number: US-PFIZER INC-2012087727

PATIENT
  Age: 10 Year
  Sex: Female
  Weight: 38.4 kg

DRUGS (12)
  1. LOVENOX [Concomitant]
  2. SENNA [Concomitant]
  3. BIOTENE [Concomitant]
  4. COLLAGENASE [Concomitant]
  5. PF-02341066 [Suspect]
     Indication: BONE SARCOMA
     Dosage: 365 MG/M2, 2X/DAY DAYS 1-28
     Route: 048
     Dates: start: 20120206
  6. DILAUDID [Concomitant]
  7. MIRALAX [Concomitant]
  8. NEURONTIN [Concomitant]
  9. PEPCID [Concomitant]
  10. BACTRIM [Concomitant]
  11. ATIVAN [Concomitant]
  12. ZOLOFT [Concomitant]

REACTIONS (1)
  - PERSONALITY CHANGE [None]
